FAERS Safety Report 4384097-3 (Version None)
Quarter: 2004Q2

REPORT INFORMATION
  Report Type: 
  Country: None (occurrence: None)
  Receive Date: 20040623
  Receipt Date: 20040623
  Transmission Date: 20050107
  Serious: Yes (Life-Threatening)
  Sender: FDA-Public Use
  Company Number: None

PATIENT
  Age: 19 Year
  Sex: Female
  Weight: 71.7 kg

DRUGS (1)
  1. ATGAM [Suspect]
     Indication: BONE MARROW TRANSPLANT
     Dosage: 1430 MG IV
     Route: 042
     Dates: start: 20040605

REACTIONS (3)
  - HYPOTENSION [None]
  - PYREXIA [None]
  - URINE OUTPUT DECREASED [None]
